FAERS Safety Report 7746838-4 (Version None)
Quarter: 2011Q3

REPORT INFORMATION
  Report Type: 
  Country: None (occurrence: None)
  Receive Date: 20110913
  Receipt Date: 20110905
  Transmission Date: 20111222
  Serious: Yes (Life-Threatening, Hospitalization, Other)
  Sender: FDA-Public Use
  Company Number: JP-JNJFOC-20110104025

PATIENT
  Sex: Female
  Weight: 41 kg

DRUGS (12)
  1. METHOTREXATE [Suspect]
     Indication: RHEUMATOID ARTHRITIS
     Route: 048
  2. PYDOXAL [Concomitant]
     Route: 048
  3. REMICADE [Suspect]
     Dosage: 1 INFUSION ON AN UNSPECIFIED DATE
     Route: 065
     Dates: start: 20101029
  4. ALENDRONATE SODIUM [Concomitant]
     Route: 048
  5. ONEALFA [Concomitant]
     Dosage: DOSE: 0.5 RG
     Route: 048
  6. PALGIN (ETIZOLAM) [Concomitant]
     Route: 048
  7. REMICADE [Suspect]
     Route: 065
     Dates: start: 20101126
  8. REMICADE [Suspect]
     Route: 065
     Dates: start: 20060801
  9. REMICADE [Suspect]
     Indication: RHEUMATOID ARTHRITIS
     Route: 065
     Dates: start: 20101015
  10. FAMOTIDINE [Concomitant]
     Route: 048
  11. PREDNISOLONE [Suspect]
     Indication: PRODUCT USED FOR UNKNOWN INDICATION
     Route: 048
  12. FOLIC ACID [Concomitant]
     Route: 048

REACTIONS (7)
  - ALTERED STATE OF CONSCIOUSNESS [None]
  - SEPTIC SHOCK [None]
  - INFECTIVE SPONDYLITIS [None]
  - DEMENTIA [None]
  - BLOOD PRESSURE INCREASED [None]
  - DRUG INEFFECTIVE [None]
  - INTERSTITIAL LUNG DISEASE [None]
